FAERS Safety Report 10490262 (Version 2)
Quarter: 2014Q4

REPORT INFORMATION
  Report Type: Spontaneous
  Country: JP (occurrence: JP)
  Receive Date: 20141002
  Receipt Date: 20141106
  Transmission Date: 20150528
  Serious: Yes (Other)
  Sender: FDA-Public Use
  Company Number: JP-009507513-1409JPN014379

PATIENT
  Age: 69 Year
  Sex: Male

DRUGS (4)
  1. GLACTIV [Suspect]
     Active Substance: SITAGLIPTIN
     Indication: TYPE 2 DIABETES MELLITUS
     Dosage: 25 MG, QD
     Route: 048
  2. SHIMBU-TO [Concomitant]
  3. MYSLEE [Concomitant]
     Active Substance: ZOLPIDEM TARTRATE
  4. ASPENON [Concomitant]
     Active Substance: APRINDINE HYDROCHLORIDE

REACTIONS (22)
  - Gastrointestinal hypermotility [Unknown]
  - Night sweats [Unknown]
  - Poor quality sleep [Unknown]
  - Tongue disorder [Unknown]
  - Dyspnoea [Unknown]
  - Sensory disturbance [Unknown]
  - Large intestine polyp [Unknown]
  - Thirst [Unknown]
  - Tongue dry [Unknown]
  - Back pain [Unknown]
  - Arrhythmia [Unknown]
  - Fall [Unknown]
  - Peripheral coldness [Unknown]
  - Feeling cold [Unknown]
  - Pollakiuria [Unknown]
  - Tinnitus [Unknown]
  - Varicose veins sublingual [Unknown]
  - Diarrhoea [Unknown]
  - Oral discomfort [Unknown]
  - Gastrointestinal sounds abnormal [Unknown]
  - Tongue coated [Unknown]
  - Irritability [Unknown]

NARRATIVE: CASE EVENT DATE: 2011
